FAERS Safety Report 6595472-0 (Version None)
Quarter: 2010Q1

REPORT INFORMATION
  Report Type: 
  Country: None (occurrence: None)
  Receive Date: 20100223
  Receipt Date: 20100106
  Transmission Date: 20100710
  Serious: Yes (Other)
  Sender: FDA-Public Use
  Company Number: AU-JNJFOC-20100102496

PATIENT
  Sex: Male
  Weight: 85 kg

DRUGS (2)
  1. TOPAMAX [Suspect]
     Indication: EPILEPSY
     Dosage: 175 MG IN THE MORNING AND 200 MG IN THE EVENING
     Route: 048
  2. CONCERTA [Suspect]
     Indication: ATTENTION DEFICIT/HYPERACTIVITY DISORDER
     Dosage: OR APPROXIMATELY NOV-2009
     Route: 048

REACTIONS (1)
  - PSYCHOTIC DISORDER [None]
